FAERS Safety Report 17819252 (Version 1)
Quarter: 2020Q2

REPORT INFORMATION
  Report Type: Report from Study
  Country: None (occurrence: CO)
  Receive Date: 20200523
  Receipt Date: 20200523
  Transmission Date: 20200714
  Serious: Yes (Hospitalization, Other)
  Sender: FDA-Public Use
  Company Number: CO-ABBVIE-20K-036-3417119-00

PATIENT
  Age: 41 Year
  Sex: Female
  Weight: 54 kg

DRUGS (1)
  1. ZEMPLAR [Suspect]
     Active Substance: PARICALCITOL
     Indication: HYPERPARATHYROIDISM
     Dosage: POST-DIALYSIS
     Route: 042
     Dates: start: 20190930

REACTIONS (7)
  - Pericardial effusion [Recovering/Resolving]
  - Dyspnoea [Recovered/Resolved]
  - Back pain [Recovering/Resolving]
  - Dyspnoea [Recovering/Resolving]
  - Chest pain [Recovering/Resolving]
  - Chest pain [Recovered/Resolved]
  - Neck pain [Recovering/Resolving]

NARRATIVE: CASE EVENT DATE: 201911
